FAERS Safety Report 19786918 (Version 9)
Quarter: 2022Q3

REPORT INFORMATION
  Report Type: Report from Study
  Country: US (occurrence: US)
  Receive Date: 20210903
  Receipt Date: 20220926
  Transmission Date: 20221027
  Serious: No
  Sender: FDA-Public Use
  Company Number: NVSC2021US198446

PATIENT
  Sex: Male

DRUGS (1)
  1. COSENTYX [Suspect]
     Active Substance: SECUKINUMAB
     Indication: Psoriasis
     Dosage: 300 MG, QW
     Route: 058

REACTIONS (5)
  - Influenza [Recovered/Resolved]
  - Dermatitis infected [Recovered/Resolved]
  - Injection site haemorrhage [Unknown]
  - Product supply issue [Unknown]
  - Psoriasis [Unknown]
